FAERS Safety Report 17861093 (Version 1)
Quarter: 2020Q2

REPORT INFORMATION
  Report Type: Spontaneous
  Country: HR (occurrence: HR)
  Receive Date: 20200604
  Receipt Date: 20200604
  Transmission Date: 20200714
  Serious: Yes (Other)
  Sender: FDA-Public Use
  Company Number: HR-JNJFOC-20200600650

PATIENT
  Sex: Female
  Weight: 60 kg

DRUGS (1)
  1. TRAMADOL/APAP [Suspect]
     Active Substance: ACETAMINOPHEN\TRAMADOL
     Indication: PRODUCT USED FOR UNKNOWN INDICATION
     Dosage: 50-60 DOSAGE FORM, 1/DAY
     Route: 048
     Dates: start: 20191201, end: 20191201

REACTIONS (4)
  - Intentional overdose [Unknown]
  - Suicide attempt [Unknown]
  - Toxicity to various agents [Unknown]
  - Epilepsy [Unknown]

NARRATIVE: CASE EVENT DATE: 20191201
